FAERS Safety Report 8398502-9 (Version None)
Quarter: 2012Q2

REPORT INFORMATION
  Report Type: 
  Country: None (occurrence: None)
  Receive Date: 20120323
  Receipt Date: 20101231
  Transmission Date: 20120825
  Serious: Yes (Disabling, Other)
  Sender: FDA-Public Use
  Company Number: 163-21880-10021093

PATIENT
  Age: 73 Year
  Sex: Male

DRUGS (6)
  1. DECADRON [Suspect]
     Indication: PRODUCT USED FOR UNKNOWN INDICATION
     Dosage: 20 MG, WITH REVLIMID ONCE WEEKLY, PO
     Route: 048
     Dates: start: 20100130, end: 20100130
  2. REVLIMID [Suspect]
     Indication: MULTIPLE MYELOMA
     Dosage: 25 MG, 1 IN 1 D, PO 10 MG, DAILY 3 WEEKS ON 1 WEEK OFF, PO
     Route: 048
     Dates: start: 20100922, end: 20101011
  3. REVLIMID [Suspect]
     Indication: MULTIPLE MYELOMA
     Dosage: 25 MG, 1 IN 1 D, PO 10 MG, DAILY 3 WEEKS ON 1 WEEK OFF, PO
     Route: 048
     Dates: start: 20100130, end: 20100202
  4. ASPIRIN [Concomitant]
  5. TOPROL-XL [Concomitant]
  6. PRAVACHOL [Concomitant]

REACTIONS (5)
  - PRURITUS [None]
  - FLUSHING [None]
  - SWELLING FACE [None]
  - OEDEMA PERIPHERAL [None]
  - DIZZINESS [None]
